FAERS Safety Report 14768081 (Version 1)
Quarter: 2018Q2

REPORT INFORMATION
  Report Type: Report from Study
  Country: DE (occurrence: DE)
  Receive Date: 20180417
  Receipt Date: 20180417
  Transmission Date: 20180711
  Serious: Yes (Other)
  Sender: FDA-Public Use
  Company Number: DE-ROCHE-2105095

PATIENT

DRUGS (2)
  1. VEMURAFENIB. [Suspect]
     Active Substance: VEMURAFENIB
     Indication: METASTATIC MALIGNANT MELANOMA
     Route: 065
  2. DABRAFENIB [Suspect]
     Active Substance: DABRAFENIB
     Indication: METASTATIC MALIGNANT MELANOMA
     Route: 065

REACTIONS (14)
  - Skin disorder [Unknown]
  - Dysgeusia [Unknown]
  - Intracranial tumour haemorrhage [Unknown]
  - Pneumonitis [Unknown]
  - Palmar-plantar erythrodysaesthesia syndrome [Unknown]
  - Cyst [Unknown]
  - Cardiac failure [Unknown]
  - Auditory disorder [Unknown]
  - Dysphagia [Unknown]
  - Recall phenomenon [Unknown]
  - Skin toxicity [Unknown]
  - Pruritus [Unknown]
  - Skin hyperpigmentation [Unknown]
  - Impaired healing [Unknown]
